FAERS Safety Report 16784941 (Version 1)
Quarter: 2019Q3

REPORT INFORMATION
  Report Type: Spontaneous
  Country: US (occurrence: US)
  Receive Date: 20190717
  Receipt Date: 20190717
  Transmission Date: 20191005
  Serious: No
  Sender: FDA-Public Use
  Company Number: None

PATIENT
  Age: 50 Year
  Sex: Female

DRUGS (2)
  1. OCALIVA [Suspect]
     Active Substance: OBETICHOLIC ACID
     Indication: PRIMARY BILIARY CHOLANGITIS
     Route: 048
     Dates: start: 20180813
  2. POLYETH GLYC POWDER [Concomitant]

REACTIONS (4)
  - Ill-defined disorder [None]
  - Pruritus [None]
  - Vomiting [None]
  - Intentional dose omission [None]

NARRATIVE: CASE EVENT DATE: 201907
